FAERS Safety Report 13095670 (Version 1)
Quarter: 2017Q1

REPORT INFORMATION
  Report Type: Spontaneous
  Country: US (occurrence: US)
  Receive Date: 20170109
  Receipt Date: 20170109
  Transmission Date: 20170428
  Serious: No
  Sender: FDA-Public Use
  Company Number: US-AUROBINDO-AUR-APL-2016-14112

PATIENT
  Age: 68 Year
  Sex: Female

DRUGS (1)
  1. CEPHALEXIN USP [Suspect]
     Active Substance: CEPHALEXIN ANHYDROUS
     Indication: INFECTION
     Dosage: 500 MG, 3 TIMES A DAY
     Route: 065
     Dates: start: 20161012

REACTIONS (3)
  - Peripheral swelling [Unknown]
  - Drug ineffective [Unknown]
  - Therapeutic response decreased [Recovered/Resolved]
